FAERS Safety Report 9512963 (Version 1)
Quarter: 2013Q3

REPORT INFORMATION
  Report Type: Spontaneous
  Country: US (occurrence: None)
  Receive Date: 20130906
  Receipt Date: 20130906
  Transmission Date: 20140515
  Serious: Yes (Hospitalization)
  Sender: FDA-Public Use
  Company Number: 2013RT000017

PATIENT
  Age: 3 Year
  Sex: Female
  Weight: 11.8 kg

DRUGS (8)
  1. PROCYSBI [Suspect]
     Indication: CYSTINOSIS
     Route: 048
     Dates: start: 201307, end: 20130817
  2. POLYCITRA [Concomitant]
  3. FOSAMAX (ALENDRONATE SODIUM) [Concomitant]
  4. LEVOCARNITINE (LEVOCARNITINE) [Concomitant]
  5. INDOMETHACIN /00003801/  (INDOMETACIN) [Concomitant]
  6. IRON [Concomitant]
  7. VITAMIN D /00107901/ (ERGOCALCIFEROL) [Concomitant]
  8. ONDANSETRON [Concomitant]

REACTIONS (4)
  - Pharyngitis streptococcal [None]
  - Ear infection [None]
  - Dehydration [None]
  - Vomiting [None]
